FAERS Safety Report 20877652 (Version 2)
Quarter: 2022Q2

REPORT INFORMATION
  Report Type: Spontaneous
  Country: JP (occurrence: JP)
  Receive Date: 20220526
  Receipt Date: 20220607
  Transmission Date: 20220720
  Serious: No
  Sender: FDA-Public Use
  Company Number: JP-MYLANLABS-2022M1037507

PATIENT

DRUGS (4)
  1. ERYTHROCIN [Suspect]
     Active Substance: ERYTHROMYCIN LACTOBIONATE
     Indication: Premature rupture of membranes
     Dosage: AT 250 MG EVERY 6 HOURS
     Route: 064
  2. AMPICILLIN [Concomitant]
     Active Substance: AMPICILLIN
     Indication: Premature rupture of membranes
     Dosage: AT 2 G FOR THE FIRST DOSE
     Route: 064
  3. AMPICILLIN [Concomitant]
     Active Substance: AMPICILLIN
     Dosage: AT 1 G EVERY 6 HOURS THEREAFTER
     Route: 064
  4. BETAMETHASONE SODIUM PHOSPHATE [Concomitant]
     Active Substance: BETAMETHASONE SODIUM PHOSPHATE
     Indication: Premature rupture of membranes
     Dosage: 12 MILLIGRAM, QD
     Route: 064

REACTIONS (1)
  - Foetal exposure during pregnancy [Recovered/Resolved]
